FAERS Safety Report 15283911 (Version 1)
Quarter: 2018Q3

REPORT INFORMATION
  Report Type: Spontaneous
  Country: US (occurrence: US)
  Receive Date: 20180801
  Receipt Date: 20180801
  Transmission Date: 20181010
  Serious: Yes (Other)
  Sender: FDA-Public Use
  Company Number: None

PATIENT
  Age: 73 Year
  Sex: Female
  Weight: 90.26 kg

DRUGS (6)
  1. VALSARTAN TAB 160MG [Suspect]
     Active Substance: VALSARTAN
     Indication: HYPERTENSION
     Dosage: ?          QUANTITY:1 DF DOSAGE FORM;?
     Route: 048
     Dates: start: 20150505, end: 20180717
  2. AMLODIPINE [Concomitant]
     Active Substance: AMLODIPINE BESYLATE
  3. SOTALOL HCL [Concomitant]
     Active Substance: SOTALOL
  4. IRBESARTAN. [Concomitant]
     Active Substance: IRBESARTAN
  5. FLUTICASONE. [Concomitant]
     Active Substance: FLUTICASONE
  6. MULTVITAMIN [Concomitant]

REACTIONS (3)
  - Product contamination [None]
  - Product use issue [None]
  - Uterine cancer [None]
